FAERS Safety Report 11681962 (Version 1)
Quarter: 2015Q4

REPORT INFORMATION
  Report Type: Spontaneous
  Country: US (occurrence: None)
  Receive Date: 20151028
  Receipt Date: 20151028
  Transmission Date: 20160304
  Serious: Yes (Other)
  Sender: FDA-Public Use
  Company Number: None

PATIENT
  Age: 62 Year
  Sex: Male

DRUGS (8)
  1. RAMUCIRUMAB [Concomitant]
     Active Substance: RAMUCIRUMAB
  2. VITAMIN D3 [Concomitant]
     Active Substance: CHOLECALCIFEROL
  3. VITAMIN C [Concomitant]
     Active Substance: ASCORBIC ACID
  4. IMPLANTED PORT [Concomitant]
  5. COD LIVER OIL [Concomitant]
     Active Substance: COD LIVER OIL
  6. PACLITAXEL. [Suspect]
     Active Substance: PACLITAXEL
  7. PACLITAXEL. [Concomitant]
     Active Substance: PACLITAXEL
  8. VITAMIN B12 [Concomitant]
     Active Substance: CYANOCOBALAMIN

REACTIONS (3)
  - Haemorrhoids [None]
  - Heart rate increased [None]
  - Rectal haemorrhage [None]

NARRATIVE: CASE EVENT DATE: 20150817
